FAERS Safety Report 6479784-7 (Version None)
Quarter: 2009Q4

REPORT INFORMATION
  Report Type: 
  Country: None (occurrence: None)
  Receive Date: 20091208
  Receipt Date: 20091127
  Transmission Date: 20100525
  Serious: Yes (Hospitalization, Other)
  Sender: FDA-Public Use
  Company Number: PHHY2009JP17685

PATIENT
  Sex: Male

DRUGS (10)
  1. AMN107 AMN+CAP [Suspect]
     Indication: CHRONIC MYELOID LEUKAEMIA
     Dosage: 400 MG/DAY
     Route: 048
     Dates: start: 20090323, end: 20090330
  2. AMN107 AMN+CAP [Suspect]
     Dosage: 800 MG/DAY
     Dates: start: 20090331, end: 20090331
  3. AMN107 AMN+CAP [Suspect]
     Dosage: 400 MG/DAY
     Dates: start: 20090401, end: 20090427
  4. AMN107 AMN+CAP [Suspect]
     Dosage: 200 MG/DAY
     Route: 048
     Dates: start: 20090617, end: 20090624
  5. AMN107 AMN+CAP [Suspect]
     Dosage: 200 MG/DAY
     Route: 048
     Dates: start: 20090625
  6. INTRON [Concomitant]
     Indication: CHRONIC MYELOID LEUKAEMIA
     Dosage: 600 IU, UNK
     Route: 042
     Dates: start: 20051012, end: 20090322
  7. HYDREA [Concomitant]
     Indication: CHRONIC MYELOID LEUKAEMIA
     Dosage: 1 DF, UNK
     Route: 048
     Dates: start: 20050905, end: 20051108
  8. BLOPRESS [Concomitant]
     Indication: HYPERTENSION
     Dosage: 4 MG, UNK
     Route: 048
     Dates: start: 20050201
  9. SALOBEL [Concomitant]
     Indication: CHRONIC MYELOID LEUKAEMIA
     Dosage: 100 MG, UNK
     Route: 048
     Dates: start: 20061213
  10. ZANTAC [Concomitant]
     Dosage: 150 MG, UNK
     Route: 048
     Dates: start: 20060101

REACTIONS (7)
  - ALANINE AMINOTRANSFERASE INCREASED [None]
  - ANAEMIA [None]
  - PANCYTOPENIA [None]
  - PLATELET COUNT DECREASED [None]
  - RASH [None]
  - VENTRICULAR EXTRASYSTOLES [None]
  - WHITE BLOOD CELL COUNT DECREASED [None]
